FAERS Safety Report 16429924 (Version 1)
Quarter: 2019Q2

REPORT INFORMATION
  Report Type: Spontaneous
  Country: DE (occurrence: DE)
  Receive Date: 20190614
  Receipt Date: 20190614
  Transmission Date: 20190711
  Serious: Yes (Hospitalization, Other)
  Sender: FDA-Public Use
  Company Number: DE-TEVA-2019-DE-1060643

PATIENT
  Age: 59 Year
  Sex: Male

DRUGS (1)
  1. FLUOROURACIL-GRY 50 MG/ML INJEKTIONSLOESUNG [Suspect]
     Active Substance: FLUOROURACIL
     Indication: NEOPLASM MALIGNANT
     Dosage: OVER 12 H INSTEAD OF 24 H, FIRST INJECTION
     Route: 065

REACTIONS (1)
  - Status epilepticus [Unknown]
